FAERS Safety Report 5835252-4 (Version None)
Quarter: 2008Q3

REPORT INFORMATION
  Report Type: 
  Country: None (occurrence: None)
  Receive Date: 20080806
  Receipt Date: 20080804
  Transmission Date: 20090109
  Serious: Yes (Death)
  Sender: FDA-Public Use
  Company Number: ES-ASTRAZENECA-2008AC01837

PATIENT
  Age: 12 Year
  Sex: Female
  Weight: 57 kg

DRUGS (17)
  1. MEROPENEM [Suspect]
     Indication: INFECTION
     Route: 042
  2. VALPROIC ACID [Interacting]
     Indication: MYOCLONIC EPILEPSY
     Route: 048
  3. VALPROIC ACID [Interacting]
     Route: 042
  4. VALPROIC ACID [Interacting]
     Route: 042
  5. VALPROIC ACID [Interacting]
     Route: 050
  6. CLONAZEPAM [Concomitant]
  7. PHENYTOIN [Concomitant]
  8. CHLORAL HYDRATE [Concomitant]
  9. PIRACETAM [Concomitant]
  10. VANCOMYCIN [Concomitant]
  11. AMIKACIN [Concomitant]
  12. REMIFENTANILE [Concomitant]
  13. PROPOFOL [Concomitant]
  14. MIDAZOLAM HCL [Concomitant]
  15. UNSPECIFIC IMMUNOGLOBULINS [Concomitant]
  16. 5-HYDROXYTRIPTOPHAN [Concomitant]
  17. TETRACOSACTIDE [Concomitant]

REACTIONS (2)
  - ANTICONVULSANT DRUG LEVEL DECREASED [None]
  - DRUG INTERACTION [None]
